FAERS Safety Report 5741225-2 (Version None)
Quarter: 2008Q2

REPORT INFORMATION
  Report Type: 
  Country: None (occurrence: None)
  Receive Date: 20080516
  Receipt Date: 20080416
  Transmission Date: 20081010
  Serious: Yes (Hospitalization)
  Sender: FDA-Public Use
  Company Number: PFIZER INC-2008040926

PATIENT
  Age: 73 Year
  Sex: Female

DRUGS (3)
  1. ATARAX [Suspect]
     Indication: RASH PRURITIC
     Route: 048
  2. ATARAX [Suspect]
     Route: 048
  3. BETAMETHASONE DIPROPIONATE [Concomitant]
     Route: 061

REACTIONS (1)
  - ACUTE GENERALISED EXANTHEMATOUS PUSTULOSIS [None]
